FAERS Safety Report 8450090-4 (Version None)
Quarter: 2012Q2

REPORT INFORMATION
  Report Type: 
  Country: None (occurrence: None)
  Receive Date: 20120620
  Receipt Date: 20120616
  Transmission Date: 20120825
  Serious: Yes (Other)
  Sender: FDA-Public Use
  Company Number: US-BAYER-2012-060069

PATIENT
  Age: 57 Year
  Sex: Female

DRUGS (5)
  1. NEXAVAR [Suspect]
     Dosage: DAILY DOSE 600 MG
     Dates: start: 20120601
  2. NEXAVAR [Suspect]
     Indication: HEPATIC NEOPLASM MALIGNANT
     Dosage: DAILY DOSE, 800 MG
     Dates: start: 20120203
  3. ZOMETA [Concomitant]
     Indication: BONE DISORDER
     Dosage: EVERY MONTH
     Route: 042
  4. NEXAVAR [Suspect]
     Dosage: DAILY DOSE 400 MG
  5. ANALGESICS [Concomitant]
     Route: 048

REACTIONS (8)
  - CELLULITIS [None]
  - CONTUSION [None]
  - DRY SKIN [None]
  - RASH PUSTULAR [None]
  - NEOPLASM PROGRESSION [None]
  - BLISTER [None]
  - JOINT SWELLING [None]
  - ARTHRALGIA [None]
